FAERS Safety Report 6628357-1 (Version None)
Quarter: 2010Q1

REPORT INFORMATION
  Report Type: 
  Country: None (occurrence: None)
  Receive Date: 20100311
  Receipt Date: 20100302
  Transmission Date: 20100710
  Serious: Yes (Hospitalization)
  Sender: FDA-Public Use
  Company Number: US-ROCHE-688802

PATIENT
  Sex: Male
  Weight: 61.7 kg

DRUGS (1)
  1. CAPECITABINE [Suspect]
     Indication: COLORECTAL CANCER
     Dosage: ROUTE REPORTED: MOUTH
     Route: 048
     Dates: start: 20090618, end: 20100221

REACTIONS (1)
  - TUBERCULOSIS [None]
